FAERS Safety Report 5798649-7 (Version None)
Quarter: 2008Q3

REPORT INFORMATION
  Report Type: 
  Country: None (occurrence: None)
  Receive Date: 20080702
  Receipt Date: 20080701
  Transmission Date: 20090109
  Serious: Yes (Other)
  Sender: FDA-Public Use
  Company Number: JP-BRISTOL-MYERS SQUIBB COMPANY-14027403

PATIENT
  Age: 9 Year
  Sex: Female

DRUGS (7)
  1. ENDOXAN [Suspect]
     Indication: DESMOPLASTIC SMALL ROUND CELL TUMOUR
     Route: 065
  2. BRIPLATIN [Suspect]
     Indication: DESMOPLASTIC SMALL ROUND CELL TUMOUR
     Route: 041
  3. VINCRISTINE SULFATE [Suspect]
     Indication: DESMOPLASTIC SMALL ROUND CELL TUMOUR
     Route: 065
  4. PIRARUBICIN HCL [Suspect]
     Indication: DESMOPLASTIC SMALL ROUND CELL TUMOUR
     Route: 065
  5. ADRIAMYCIN PFS [Suspect]
     Indication: DESMOPLASTIC SMALL ROUND CELL TUMOUR
  6. RADIOTHERAPY [Suspect]
  7. ONCOVIN [Concomitant]
     Route: 042

REACTIONS (5)
  - CHROMOSOME ANALYSIS ABNORMAL [None]
  - CYTOGENETIC ABNORMALITY [None]
  - DISEASE PROGRESSION [None]
  - MYELODYSPLASTIC SYNDROME [None]
  - VENOOCCLUSIVE LIVER DISEASE [None]
